FAERS Safety Report 10105783 (Version 2)
Quarter: 2014Q3

REPORT INFORMATION
  Report Type: Other
  Country: US (occurrence: US)
  Receive Date: 20140424
  Receipt Date: 20140716
  Transmission Date: 20150326
  Serious: Yes (Hospitalization, Other)
  Sender: FDA-Public Use
  Company Number: US-GSKPPD-2014GSK001884

PATIENT
  Age: 65 Year
  Sex: Female

DRUGS (6)
  1. LASIX [Concomitant]
     Active Substance: FUROSEMIDE
  2. PLAVIX [Concomitant]
     Active Substance: CLOPIDOGREL BISULFATE
  3. CARVEDILOL. [Concomitant]
     Active Substance: CARVEDILOL
  4. HYDRALAZINE [Concomitant]
     Active Substance: HYDRALAZINE HYDROCHLORIDE
  5. LIPITOR [Concomitant]
     Active Substance: ATORVASTATIN CALCIUM
  6. AVANDIA [Suspect]
     Active Substance: ROSIGLITAZONE MALEATE
     Indication: DIABETES MELLITUS
     Dosage: AVANDIA WAS NOT LISTED AMONG THE PATIENT^S DISCHARGE RECORDS.
     Route: 048

REACTIONS (2)
  - Cardiac failure congestive [Recovered/Resolved]
  - Myocardial infarction [None]

NARRATIVE: CASE EVENT DATE: 20110429
